FAERS Safety Report 17362376 (Version 1)
Quarter: 2020Q1

REPORT INFORMATION
  Report Type: Spontaneous
  Country: SE (occurrence: SE)
  Receive Date: 20200203
  Receipt Date: 20200203
  Transmission Date: 20200409
  Serious: Yes (Life-Threatening, Disabling)
  Sender: FDA-Public Use
  Company Number: SE-ASTRAZENECA-2020SE15197

PATIENT
  Age: 76 Year
  Sex: Male

DRUGS (5)
  1. TROMBYL [Concomitant]
     Active Substance: ASPIRIN
     Dates: start: 2000
  2. ATORVASTATIN [Concomitant]
     Active Substance: ATORVASTATIN
     Dates: start: 2018
  3. BRILIQUE [Suspect]
     Active Substance: TICAGRELOR
     Indication: MYOCARDIAL INFARCTION
     Route: 048
     Dates: start: 20180624, end: 20180727
  4. ESOMEPRAZOLE. [Concomitant]
     Active Substance: ESOMEPRAZOLE MAGNESIUM
     Dates: start: 2018
  5. ALFUZOSIN [Concomitant]
     Active Substance: ALFUZOSIN
     Dates: start: 2017

REACTIONS (6)
  - Asocial behaviour [Recovered/Resolved with Sequelae]
  - Apnoea [Recovered/Resolved with Sequelae]
  - Suicidal ideation [Recovered/Resolved with Sequelae]
  - Panic attack [Recovered/Resolved]
  - Sleep apnoea syndrome [Recovered/Resolved with Sequelae]
  - Personality change [Recovered/Resolved with Sequelae]

NARRATIVE: CASE EVENT DATE: 2018
